FAERS Safety Report 9330452 (Version 1)
Quarter: 2013Q2

REPORT INFORMATION
  Report Type: Spontaneous
  Country: US (occurrence: US)
  Receive Date: 20130605
  Receipt Date: 20130605
  Transmission Date: 20140414
  Serious: No
  Sender: FDA-Public Use
  Company Number: US-BIOGENIDEC-2013BI050171

PATIENT
  Sex: Female

DRUGS (1)
  1. TYSABRI [Suspect]
     Indication: MULTIPLE SCLEROSIS
     Route: 042
     Dates: start: 20120719

REACTIONS (11)
  - Ill-defined disorder [Unknown]
  - Bladder disorder [Unknown]
  - Gastrointestinal disorder [Unknown]
  - Temperature intolerance [Unknown]
  - Feeling hot [Unknown]
  - Hyperhidrosis [Unknown]
  - Large intestinal ulcer haemorrhage [Unknown]
  - Fatigue [Unknown]
  - Asthenia [Unknown]
  - Drug ineffective [Unknown]
  - Nausea [Unknown]
